FAERS Safety Report 4553978-X (Version None)
Quarter: 2005Q1

REPORT INFORMATION
  Report Type: 
  Country: None (occurrence: None)
  Receive Date: 20050118
  Receipt Date: 20050107
  Transmission Date: 20050727
  Serious: Yes (Other)
  Sender: FDA-Public Use
  Company Number: PHEH2005US00663

PATIENT
  Age: 75 Year
  Sex: Female

DRUGS (1)
  1. LOTREL [Suspect]
     Indication: HYPERTENSION
     Dosage: 5 MG AMLOD/10 MG BENAZ QD
     Dates: start: 20020101

REACTIONS (4)
  - BIOPSY [None]
  - HEPATIC ENZYME INCREASED [None]
  - HEPATIC NEOPLASM MALIGNANT [None]
  - ULTRASOUND LIVER ABNORMAL [None]
